FAERS Safety Report 5368421-0 (Version None)
Quarter: 2007Q2

REPORT INFORMATION
  Report Type: 
  Country: None (occurrence: None)
  Receive Date: 20070622
  Receipt Date: 20070622
  Transmission Date: 20071010
  Serious: Yes (Hospitalization)
  Sender: FDA-Public Use
  Company Number: None

PATIENT
  Age: 30 Year
  Sex: Male
  Weight: 50 kg

DRUGS (1)
  1. PREGABALIN [Suspect]
     Dates: start: 20070428, end: 20070502

REACTIONS (1)
  - PYREXIA [None]
